FAERS Safety Report 11766201 (Version 2)
Quarter: 2015Q4

REPORT INFORMATION
  Report Type: Spontaneous
  Country: US (occurrence: US)
  Receive Date: 20151122
  Receipt Date: 20151125
  Transmission Date: 20160304
  Serious: Yes (Death, Life-Threatening, Hospitalization)
  Sender: FDA-Public Use
  Company Number: US-HOSPIRA-3058736

PATIENT
  Age: 51 Year
  Sex: Male
  Weight: 100 kg

DRUGS (17)
  1. INSULIN [Concomitant]
     Active Substance: INSULIN NOS
     Indication: TYPE 2 DIABETES MELLITUS
     Dosage: GIVEN WITHIN 1 HOUR OF ADMINISTRATION OF NORADRENALINE
     Route: 041
     Dates: start: 20151005
  2. KCL [Concomitant]
     Active Substance: POTASSIUM CHLORIDE
     Indication: ELECTROLYTE SUBSTITUTION THERAPY
     Dosage: GIVEN WITHIN 1 HOUR OF ADMINISTRATION OF NORADRENALINE
     Route: 042
     Dates: start: 20151005
  3. HEPARIN [Concomitant]
     Active Substance: HEPARIN SODIUM
     Indication: THROMBOSIS PROPHYLAXIS
     Dosage: GIVEN WITHIN 1 HOUR OF ADMINISTRATION OF NORADRENALINE
     Route: 058
     Dates: start: 20151005
  4. VASOPRESSIN. [Concomitant]
     Active Substance: VASOPRESSIN
     Indication: SHOCK
     Dosage: GIVEN WITHIN 1 HOUR OF ADMINISTRATION OF NORADRENALINE
     Route: 041
     Dates: start: 20151005
  5. LEVOPHED [Suspect]
     Active Substance: NOREPINEPHRINE BITARTRATE
     Indication: HYPOTENSION
     Dosage: HIGH-CONCENTRATE
     Route: 041
     Dates: start: 20151005
  6. FUROSEMIDE. [Concomitant]
     Active Substance: FUROSEMIDE
     Indication: RESPIRATORY THERAPY
     Dosage: GIVEN WITHIN 1 HOUR OF ADMINISTRATION OF NORADRENALINE, X1
     Route: 040
     Dates: start: 20151005
  7. VANCOMYCIN [Concomitant]
     Active Substance: VANCOMYCIN
     Indication: EVIDENCE BASED TREATMENT
     Dosage: GIVEN WITHIN 1 HOUR OF ADMINISTRATION OF NORADRENALINE, X1
     Route: 042
     Dates: start: 20151005
  8. PHENYLEPHRINE [Concomitant]
     Active Substance: PHENYLEPHRINE\PHENYLEPHRINE HYDROCHLORIDE
     Indication: HYPOTENSION
     Dosage: GIVEN WITHIN 1 HOUR OF ADMINISTRATION OF NORADRENALINE
     Route: 041
     Dates: start: 20151005
  9. VASOPRESSIN. [Concomitant]
     Active Substance: VASOPRESSIN
     Indication: HYPOTENSION
     Dosage: GIVEN WITHIN 1 HOUR OF ADMINISTRATION OF NORADRENALINE
     Route: 041
     Dates: start: 20151005
  10. VANCOMYCIN [Concomitant]
     Active Substance: VANCOMYCIN
     Indication: INFECTION
     Dosage: GIVEN WITHIN 1 HOUR OF ADMINISTRATION OF NORADRENALINE, X1
     Route: 042
     Dates: start: 20151005
  11. PHENYLEPHRINE [Concomitant]
     Active Substance: PHENYLEPHRINE\PHENYLEPHRINE HYDROCHLORIDE
     Indication: SHOCK
     Dosage: GIVEN WITHIN 1 HOUR OF ADMINISTRATION OF NORADRENALINE
     Route: 041
     Dates: start: 20151005
  12. PANTOPRAZOLE [Concomitant]
     Active Substance: PANTOPRAZOLE SODIUM
     Indication: STRESS ULCER
     Dosage: GIVEN WITHIN 1 HOUR OF ADMINISTRATION OF NORADRENALINE
     Route: 040
     Dates: start: 20151005
  13. ALBUMIN [Concomitant]
     Active Substance: ALBUMIN (HUMAN)
     Indication: RESPIRATORY THERAPY
  14. NOREPINEPHRINE [Concomitant]
     Active Substance: NOREPINEPHRINE\NOREPINEPHRINE BITARTRATE
     Indication: HYPOTENSION
     Dosage: 18 MCG/MIN INCREASED TO 20 MCG/MIN
  15. PANTOPRAZOLE [Concomitant]
     Active Substance: PANTOPRAZOLE SODIUM
     Indication: PROPHYLAXIS
     Dosage: GIVEN WITHIN 1 HOUR OF ADMINISTRATION OF NORADRENALINE
     Route: 040
     Dates: start: 20151005
  16. INSULIN [Concomitant]
     Active Substance: INSULIN NOS
     Indication: HYPOTHERMIA
     Dosage: GIVEN WITHIN 1 HOUR OF ADMINISTRATION OF NORADRENALINE
     Route: 041
     Dates: start: 20151005
  17. DOPAMINE [Concomitant]
     Active Substance: DOPAMINE\DOPAMINE HYDROCHLORIDE
     Indication: VASOPRESSIVE THERAPY
     Dosage: GIVEN WITHIN 1 HOUR OF ADMINISTRATION OF NORADRENALINE
     Route: 041
     Dates: start: 20151005

REACTIONS (3)
  - Cardio-respiratory arrest [Fatal]
  - Nervous system disorder [Unknown]
  - Drug ineffective [Recovered/Resolved]

NARRATIVE: CASE EVENT DATE: 20151005
